FAERS Safety Report 14919585 (Version 1)
Quarter: 2018Q2

REPORT INFORMATION
  Report Type: Report from Study
  Country: US (occurrence: US)
  Receive Date: 20180521
  Receipt Date: 20180521
  Transmission Date: 20180711
  Serious: Yes (Other)
  Sender: FDA-Public Use
  Company Number: PHEH2018US018688

PATIENT
  Sex: Female

DRUGS (1)
  1. AFINITOR [Suspect]
     Active Substance: EVEROLIMUS
     Indication: PRODUCT USED FOR UNKNOWN INDICATION
     Dosage: UNK
     Route: 065

REACTIONS (9)
  - Hepatic enzyme increased [Unknown]
  - Renal neoplasm [Unknown]
  - Menstrual disorder [Unknown]
  - Mouth swelling [Unknown]
  - Viral infection [Unknown]
  - Speech disorder [Unknown]
  - Renal haemorrhage [Unknown]
  - Feeling abnormal [Unknown]
  - Stomatitis [Unknown]
